FAERS Safety Report 7173668 (Version 4)
Quarter: 2017Q4

REPORT INFORMATION
  Report Type: Spontaneous
  Country: HK (occurrence: HK)
  Receive Date: 20091111
  Receipt Date: 20171026
  Transmission Date: 20180321
  Serious: Yes (Hospitalization)
  Sender: FDA-Public Use
  Company Number: HK-BAYER-200935458GPV

PATIENT
  Age: 30 Year
  Sex: Female

DRUGS (2)
  1. PARACETAMOL [Concomitant]
     Active Substance: ACETAMINOPHEN
     Indication: ANALGESIC THERAPY
     Dosage: AS USED DOSE: UNK
     Route: 048
     Dates: start: 20091005
  2. BETAFERON [Suspect]
     Active Substance: INTERFERON BETA-1B
     Indication: MULTIPLE SCLEROSIS
     Route: 058
     Dates: start: 20091005, end: 20091030

REACTIONS (7)
  - Multiple sclerosis relapse [Unknown]
  - Fatigue [Recovering/Resolving]
  - Headache [Recovered/Resolved]
  - Multiple sclerosis relapse [Recovered/Resolved]
  - Hypoaesthesia [Recovered/Resolved]
  - Dizziness [Recovering/Resolving]
  - Musculoskeletal stiffness [Recovering/Resolving]

NARRATIVE: CASE EVENT DATE: 20091007
